FAERS Safety Report 25716117 (Version 4)
Quarter: 2025Q3

REPORT INFORMATION
  Report Type: Spontaneous
  Country: US (occurrence: US)
  Receive Date: 20250822
  Receipt Date: 20250924
  Transmission Date: 20251020
  Serious: Yes (Other)
  Sender: PFIZER
  Company Number: US-PFIZER INC-202500167564

PATIENT
  Age: 60 Year
  Sex: Female
  Weight: 63.5 kg

DRUGS (5)
  1. ESTRING [Suspect]
     Active Substance: ESTRADIOL
     Indication: Pain
     Dosage: 7.5MG PER 24 HOURS; EVERY 3 MONTHS.
     Route: 067
     Dates: start: 20250701, end: 20250816
  2. ESTRING [Suspect]
     Active Substance: ESTRADIOL
     Indication: Vulvovaginal dryness
  3. ESTRING [Suspect]
     Active Substance: ESTRADIOL
     Indication: Dyspareunia
  4. PROGESTERONE [Concomitant]
     Active Substance: PROGESTERONE
     Indication: Menopause
     Dosage: 100 MG, 1X/DAY
  5. PROGESTERONE [Concomitant]
     Active Substance: PROGESTERONE
     Indication: Hormone replacement therapy

REACTIONS (3)
  - Vaginal odour [Recovered/Resolved]
  - Vaginal discharge [Unknown]
  - Device issue [Unknown]

NARRATIVE: CASE EVENT DATE: 20250809
